FAERS Safety Report 15768624 (Version 1)
Quarter: 2018Q4

REPORT INFORMATION
  Report Type: Spontaneous
  Country: US (occurrence: US)
  Receive Date: 20181228
  Receipt Date: 20181228
  Transmission Date: 20190205
  Serious: No
  Sender: FDA-Public Use
  Company Number: US-CELGENEUS-USA-20181207730

PATIENT
  Age: 44 Year
  Sex: Male

DRUGS (1)
  1. OTEZLA [Suspect]
     Active Substance: APREMILAST
     Indication: PSORIASIS
     Dosage: (SAMPLE PACK)
     Route: 048
     Dates: start: 20181108

REACTIONS (2)
  - Product dose omission [Unknown]
  - Irritability [Unknown]

NARRATIVE: CASE EVENT DATE: 20181109
